FAERS Safety Report 24095247 (Version 1)
Quarter: 2024Q3

REPORT INFORMATION
  Report Type: Spontaneous
  Country: IN (occurrence: IN)
  Receive Date: 20240716
  Receipt Date: 20240716
  Transmission Date: 20241016
  Serious: Yes (Other)
  Sender: ROCHE
  Company Number: IN-BoehringerIngelheim-2024-BI-038652

PATIENT
  Age: 18 Year
  Sex: Male

DRUGS (1)
  1. TENECTEPLASE [Suspect]
     Active Substance: TENECTEPLASE
     Indication: Pulmonary embolism
     Dosage: FORM STRENGTH: 20 MILLIGRAM
     Route: 042

REACTIONS (5)
  - Acute kidney injury [Recovered/Resolved]
  - Haemothorax [Recovered/Resolved]
  - Ischaemic stroke [Recovered/Resolved with Sequelae]
  - Weaning failure [Recovered/Resolved]
  - Intra-abdominal haemorrhage [Recovered/Resolved]
